FAERS Safety Report 7443598-1 (Version None)
Quarter: 2011Q2

REPORT INFORMATION
  Report Type: 
  Country: None (occurrence: None)
  Receive Date: 20110428
  Receipt Date: 20110415
  Transmission Date: 20111010
  Serious: Yes (Hospitalization, Other)
  Sender: FDA-Public Use
  Company Number: US-BAYER-201024550NA

PATIENT
  Age: 25 Year
  Sex: Female
  Weight: 74.83 kg

DRUGS (18)
  1. ORTHO TRI-CYCLEN [Concomitant]
     Indication: ORAL CONTRACEPTION
  2. TOPAMAX [Concomitant]
  3. YAZ [Suspect]
     Indication: MENSTRUAL CYCLE MANAGEMENT
  4. SPRINTEC [Concomitant]
     Indication: ORAL CONTRACEPTION
     Dosage: UNK
     Dates: start: 20080515, end: 20090101
  5. KEPPRA [Concomitant]
     Indication: CONVULSION
  6. YASMIN [Suspect]
     Indication: ACNE
  7. VASOTEC [Concomitant]
     Dosage: UNK
     Dates: start: 19830101
  8. OVCON-35 [Concomitant]
     Indication: ORAL CONTRACEPTION
     Dosage: UNK
     Dates: start: 20070110, end: 20070201
  9. INSULIN [Concomitant]
     Indication: DIABETES MELLITUS
     Dosage: UNK
     Dates: start: 19830101
  10. LAMICTAL [Concomitant]
     Indication: CONVULSION
     Dosage: UNK
     Dates: start: 20080101
  11. YAZ [Suspect]
     Indication: CONTRACEPTION
     Dosage: UNK UNK, QD
     Route: 048
     Dates: start: 20080301, end: 20080401
  12. YAZ [Suspect]
     Indication: ACNE
  13. YASMIN [Suspect]
     Indication: CONTRACEPTION
     Dosage: UNK
     Dates: start: 20070301, end: 20080201
  14. YASMIN [Suspect]
     Indication: MENSTRUAL CYCLE MANAGEMENT
  15. OVCON-35 [Concomitant]
     Dosage: UNK
     Dates: start: 20070202
  16. LEVAQUIN [Concomitant]
     Dosage: UNK
     Dates: start: 19830101
  17. ENALAPRIL [Concomitant]
     Dosage: UNK
     Dates: start: 20080101
  18. SPRINTEC [Concomitant]
     Dosage: UNK
     Dates: start: 20090129

REACTIONS (11)
  - ABDOMINAL PAIN UPPER [None]
  - CONVULSION [None]
  - CHOLECYSTITIS [None]
  - LYMPHADENOPATHY [None]
  - REFLUX OESOPHAGITIS [None]
  - GASTRITIS [None]
  - DUODENITIS [None]
  - GALLBLADDER CHOLESTEROLOSIS [None]
  - BILIARY COLIC [None]
  - CHOLELITHIASIS [None]
  - ABDOMINAL PAIN LOWER [None]
